FAERS Safety Report 19494740 (Version 1)
Quarter: 2021Q3

REPORT INFORMATION
  Report Type: Spontaneous
  Country: US (occurrence: US)
  Receive Date: 20210706
  Receipt Date: 20210706
  Transmission Date: 20211014
  Serious: Yes (Hospitalization, Other)
  Sender: FDA-Public Use
  Company Number: US-BRISTOL-MYERS SQUIBB COMPANY-BMS-2021-062997

PATIENT
  Age: 87 Year
  Sex: Female
  Weight: 47.62 kg

DRUGS (3)
  1. ENTRESTO [Concomitant]
     Active Substance: SACUBITRIL\VALSARTAN
     Indication: PRODUCT USED FOR UNKNOWN INDICATION
     Dosage: TWICE A DAY, 24?25MG IN MORNING AND 45?51MG AT NIGHT
     Route: 065
  2. SPIRONOLACTONE. [Concomitant]
     Active Substance: SPIRONOLACTONE
     Indication: PRODUCT USED FOR UNKNOWN INDICATION
     Dosage: 25MG ? HALF A TABLET
     Route: 065
  3. ELIQUIS [Suspect]
     Active Substance: APIXABAN
     Indication: PULMONARY EMBOLISM
     Dosage: 5 MILLIGRAM, BID
     Route: 065
     Dates: start: 201908

REACTIONS (7)
  - Fall [Unknown]
  - Blood pressure fluctuation [Unknown]
  - Hip fracture [Unknown]
  - Scar [Unknown]
  - Left ventricular failure [Unknown]
  - Dizziness [Unknown]
  - Weight fluctuation [Unknown]

NARRATIVE: CASE EVENT DATE: 202006
